FAERS Safety Report 6672988-X (Version None)
Quarter: 2010Q2

REPORT INFORMATION
  Report Type: 
  Country: None (occurrence: None)
  Receive Date: 20100408
  Receipt Date: 20100329
  Transmission Date: 20101027
  Serious: Yes (Hospitalization, Disabling)
  Sender: FDA-Public Use
  Company Number: B0634725A

PATIENT
  Sex: Female

DRUGS (9)
  1. PAXIL [Suspect]
     Indication: DRUG USE FOR UNKNOWN INDICATION
     Dosage: 40MG PER DAY
     Route: 048
  2. BIPERIDEN HYDROCHLORIDE [Suspect]
     Dosage: 3U PER DAY
     Route: 048
  3. MILNACIPRAN HYDROCHLORIDE [Concomitant]
     Route: 048
  4. MIANSERIN HYDROCHLORIDE [Concomitant]
     Dosage: 60MG PER DAY
     Route: 048
  5. QUETIAPINE FUMARATE [Concomitant]
     Dosage: 65MG PER DAY
     Route: 048
  6. AMOXAN [Concomitant]
     Dosage: 75MG PER DAY
     Route: 048
  7. UNKNOWN DRUG [Concomitant]
     Dosage: 1.5MG PER DAY
     Route: 048
  8. MINZAIN [Concomitant]
     Dosage: 2U PER DAY
     Route: 048
  9. FLUNITRAZEPAM [Concomitant]
     Dosage: 2MG PER DAY
     Route: 048

REACTIONS (29)
  - ABDOMINAL PAIN [None]
  - AMNESIA [None]
  - APATHY [None]
  - BALANCE DISORDER [None]
  - BEHAVIOURAL AND PSYCHIATRIC SYMPTOMS OF DEMENTIA [None]
  - COGNITIVE DISORDER [None]
  - CONFABULATION [None]
  - CONTUSION [None]
  - DECREASED ACTIVITY [None]
  - DECREASED APPETITE [None]
  - DEMENTIA [None]
  - DEPRESSION [None]
  - DISEASE RECURRENCE [None]
  - DISORIENTATION [None]
  - DYSARTHRIA [None]
  - FACIAL PAIN [None]
  - FALL [None]
  - GAIT DISTURBANCE [None]
  - INJURY [None]
  - INSOMNIA [None]
  - MALAISE [None]
  - MEMORY IMPAIRMENT [None]
  - MUSCULAR WEAKNESS [None]
  - OBSESSIVE-COMPULSIVE DISORDER [None]
  - POLLAKIURIA [None]
  - PORIOMANIA [None]
  - SPEECH DISORDER [None]
  - TENSION [None]
  - ULNA FRACTURE [None]
